FAERS Safety Report 8515612-3 (Version None)
Quarter: 2012Q3

REPORT INFORMATION
  Report Type: 
  Country: None (occurrence: None)
  Receive Date: 20120717
  Receipt Date: 20120711
  Transmission Date: 20120928
  Serious: Yes (Other)
  Sender: FDA-Public Use
  Company Number: PHHY2012IT060518

PATIENT
  Sex: Female

DRUGS (5)
  1. MAGNESIUM HYDROXIDE TAB [Concomitant]
     Route: 048
  2. LANSOPRAZOLE [Concomitant]
     Route: 048
  3. ATORVASTATIN [Suspect]
     Indication: DYSLIPIDAEMIA
     Dosage: 10 MG
     Route: 048
     Dates: start: 20120608, end: 20120610
  4. ALENDRONATE SODIUM [Concomitant]
     Route: 048
  5. SERTRALINE HYDROCHLORIDE [Concomitant]

REACTIONS (1)
  - ANGIOEDEMA [None]
